FAERS Safety Report 9676219 (Version 1)
Quarter: 2013Q4

REPORT INFORMATION
  Report Type: Spontaneous
  Country: GB (occurrence: GB)
  Receive Date: 20131107
  Receipt Date: 20131107
  Transmission Date: 20140711
  Serious: Yes (Other)
  Sender: FDA-Public Use
  Company Number: GB-TEVA-441772ISR

PATIENT
  Sex: Male

DRUGS (6)
  1. VINCRISTINE [Suspect]
     Indication: B-CELL LYMPHOMA
     Route: 065
  2. PREDNISOLONE [Suspect]
     Indication: B-CELL LYMPHOMA
     Route: 065
  3. PREDNISOLONE [Suspect]
     Indication: B-CELL LYMPHOMA
  4. MABTHERA [Suspect]
     Indication: B-CELL LYMPHOMA
     Route: 065
  5. CYCLOPHOSPHAMIDE [Suspect]
     Indication: B-CELL LYMPHOMA
     Route: 065
  6. DOXORUBICIN [Suspect]
     Indication: B-CELL LYMPHOMA
     Route: 065

REACTIONS (1)
  - Immunodeficiency [Unknown]
